FAERS Safety Report 12997168 (Version 1)
Quarter: 2016Q4

REPORT INFORMATION
  Report Type: Report from Study
  Country: CN (occurrence: CN)
  Receive Date: 20161205
  Receipt Date: 20161205
  Transmission Date: 20170207
  Serious: Yes (Other)
  Sender: FDA-Public Use
  Company Number: CN-ROCHE-1859145

PATIENT

DRUGS (5)
  1. CISPLATIN. [Suspect]
     Active Substance: CISPLATIN
     Indication: GASTRIC CANCER STAGE III
     Route: 042
  2. TRASTUZUMAB [Suspect]
     Active Substance: TRASTUZUMAB
     Indication: HER-2 POSITIVE GASTRIC CANCER
     Route: 065
  3. TS-1 [Suspect]
     Active Substance: GIMERACIL\OTERACIL\TEGAFUR
     Indication: GASTRIC CANCER STAGE III
     Route: 048
  4. DOCETAXEL. [Suspect]
     Active Substance: DOCETAXEL
     Indication: GASTRIC CANCER STAGE III
     Route: 042
  5. DEXAMETHASONE. [Suspect]
     Active Substance: DEXAMETHASONE
     Indication: PROPHYLAXIS
     Route: 065

REACTIONS (9)
  - Hepatic function abnormal [Recovered/Resolved]
  - Alopecia [Recovered/Resolved]
  - White blood cell count decreased [Recovered/Resolved]
  - Thrombocytopenia [Recovered/Resolved]
  - Haemoglobin decreased [Recovered/Resolved]
  - Diarrhoea [Recovered/Resolved]
  - Vomiting [Recovered/Resolved]
  - Skin hyperpigmentation [Recovered/Resolved]
  - Nausea [Recovered/Resolved]
